FAERS Safety Report 9132477 (Version 1)
Quarter: 2013Q1

REPORT INFORMATION
  Report Type: Spontaneous
  Country: US (occurrence: US)
  Receive Date: 20130120
  Receipt Date: 20130120
  Transmission Date: 20140127
  Serious: No
  Sender: FDA-Public Use
  Company Number: US-ALLERGAN-1212684US

PATIENT
  Sex: Female

DRUGS (5)
  1. BOTOX COSMETIC [Suspect]
     Indication: SKIN WRINKLING
     Dosage: UNK UNK, SINGLE
     Route: 030
     Dates: start: 20110911, end: 20110911
  2. BOTOX COSMETIC [Suspect]
     Indication: SKIN WRINKLING
  3. JUVEDERM [Suspect]
     Indication: SKIN WRINKLING
     Dosage: UNK
     Route: 030
     Dates: start: 20110911, end: 20110911
  4. JUVEDERM [Suspect]
     Indication: SKIN WRINKLING
  5. ANTIBIOTIC [Concomitant]
     Indication: SINUSITIS
     Dosage: UNK
     Dates: start: 20110909

REACTIONS (8)
  - Skin disorder [Unknown]
  - Muscle disorder [Unknown]
  - Eyelid ptosis [Unknown]
  - Skin disorder [Unknown]
  - Facial pain [Unknown]
  - Neck pain [Unknown]
  - Vision blurred [Unknown]
  - Facial paresis [Unknown]
